FAERS Safety Report 4832794-5 (Version None)
Quarter: 2005Q4

REPORT INFORMATION
  Report Type: 
  Country: None (occurrence: None)
  Receive Date: 20051117
  Receipt Date: 20051117
  Transmission Date: 20060501
  Serious: Yes (Life-Threatening)
  Sender: FDA-Public Use
  Company Number: None

PATIENT
  Age: 23 Year
  Sex: Male
  Weight: 72.5755 kg

DRUGS (1)
  1. RISPERDAL [Suspect]
     Indication: ANXIETY
     Dosage: 2MG TID PO
     Route: 048
     Dates: start: 20050304, end: 20050729

REACTIONS (10)
  - ASTHENIA [None]
  - COGNITIVE DISORDER [None]
  - DIZZINESS [None]
  - EJECTION FRACTION DECREASED [None]
  - FATIGUE [None]
  - MEMORY IMPAIRMENT [None]
  - MYALGIA [None]
  - MYOCARDITIS [None]
  - NAUSEA [None]
  - VENTRICULAR DYSFUNCTION [None]
